FAERS Safety Report 6215620-1 (Version None)
Quarter: 2009Q2

REPORT INFORMATION
  Report Type: 
  Country: None (occurrence: None)
  Receive Date: 20090603
  Receipt Date: 20090603
  Transmission Date: 20091009
  Serious: Yes (Death)
  Sender: FDA-Public Use
  Company Number: None

PATIENT
  Age: 50 Year
  Sex: Female

DRUGS (2)
  1. PROLIXIN [Suspect]
     Indication: PSYCHOTIC DISORDER
     Dosage: 10MG Q6  PRN IV/PO
     Route: 042
     Dates: start: 20090127, end: 20090130
  2. PROLIXIN DECANOATE [Suspect]
     Indication: PSYCHOTIC DISORDER
     Dosage: 25 MG Q14D IM
     Route: 030
     Dates: start: 20090127

REACTIONS (3)
  - CARDIAC ARREST [None]
  - ELECTROCARDIOGRAM QT PROLONGED [None]
  - SUDDEN CARDIAC DEATH [None]
